FAERS Safety Report 7292522-3 (Version None)
Quarter: 2011Q1

REPORT INFORMATION
  Report Type: 
  Country: None (occurrence: None)
  Receive Date: 20110215
  Receipt Date: 20110201
  Transmission Date: 20110831
  Serious: Yes (Hospitalization)
  Sender: FDA-Public Use
  Company Number: GB-RANBAXY-2011R1-41582

PATIENT
  Age: 72 Year
  Sex: Female

DRUGS (3)
  1. ACETAMINOPHEN W/ CODEINE [Concomitant]
     Indication: PRODUCT USED FOR UNKNOWN INDICATION
     Dosage: UNK
     Route: 065
  2. AMPICILLIN SODIUM/SULBACTAM SODIUM [Suspect]
     Indication: ACUTE SINUSITIS
     Dosage: 250 MG, TID
     Route: 048
     Dates: start: 20101109, end: 20101116
  3. AMOXICILLIN [Concomitant]
     Indication: PRODUCT USED FOR UNKNOWN INDICATION
     Dosage: UNK
     Route: 065

REACTIONS (2)
  - JAUNDICE CHOLESTATIC [None]
  - NIGHTMARE [None]
